FAERS Safety Report 12082380 (Version 3)
Quarter: 2016Q1

REPORT INFORMATION
  Report Type: Report from Study
  Country: BE (occurrence: BE)
  Receive Date: 20160217
  Receipt Date: 20160309
  Transmission Date: 20160526
  Serious: Yes (Hospitalization, Other)
  Sender: FDA-Public Use
  Company Number: BE-ROCHE-1712020

PATIENT
  Age: 72 Year
  Sex: Male

DRUGS (19)
  1. TRANXENE T-TAB [Concomitant]
     Active Substance: CLORAZEPATE DIPOTASSIUM
     Route: 065
     Dates: start: 2005
  2. CALCIUM CARBONATE. [Concomitant]
     Active Substance: CALCIUM CARBONATE
  3. RANIBIZUMAB [Suspect]
     Active Substance: RANIBIZUMAB
     Indication: NEOVASCULAR AGE-RELATED MACULAR DEGENERATION
     Dosage: RIGHT EYE
     Route: 050
     Dates: start: 20120109
  4. ZOLPIDEM [Concomitant]
     Active Substance: ZOLPIDEM\ZOLPIDEM TARTRATE
     Route: 065
     Dates: start: 2009
  5. RISEDRONATE [Concomitant]
     Active Substance: RISEDRONATE SODIUM
  6. RANIBIZUMAB [Suspect]
     Active Substance: RANIBIZUMAB
     Dosage: RIGHT EYE
     Route: 050
     Dates: start: 20141021, end: 20141021
  7. RANIBIZUMAB [Suspect]
     Active Substance: RANIBIZUMAB
     Dosage: RIGHT EYE
     Route: 050
     Dates: start: 20151116, end: 20151116
  8. RANIBIZUMAB [Suspect]
     Active Substance: RANIBIZUMAB
     Dosage: LEFT EYE
     Route: 050
     Dates: start: 20151123, end: 20151123
  9. RANIBIZUMAB [Suspect]
     Active Substance: RANIBIZUMAB
     Dosage: RIGHT EYE
     Route: 050
     Dates: start: 20140827
  10. RANIBIZUMAB [Suspect]
     Active Substance: RANIBIZUMAB
     Dosage: LEFT EYE
     Route: 050
     Dates: start: 20151006, end: 20151006
  11. ZESTORETIC [Concomitant]
     Active Substance: HYDROCHLOROTHIAZIDE\LISINOPRIL
     Route: 065
     Dates: start: 2007
  12. CLOPIDOGREL [Concomitant]
     Active Substance: CLOPIDOGREL BISULFATE
     Route: 065
     Dates: start: 20151217
  13. LIPITOR [Concomitant]
     Active Substance: ATORVASTATIN CALCIUM
     Route: 065
     Dates: start: 2007
  14. RANIBIZUMAB [Suspect]
     Active Substance: RANIBIZUMAB
     Dosage: RIGHT EYE
     Route: 050
     Dates: start: 20140814
  15. LUMIGAN [Concomitant]
     Active Substance: BIMATOPROST
     Route: 065
     Dates: start: 20130412
  16. ASAFLOW [Concomitant]
     Active Substance: ASPIRIN
     Route: 065
     Dates: start: 20151217
  17. EMCONCOR [Concomitant]
     Active Substance: BISOPROLOL FUMARATE
     Route: 065
     Dates: start: 20151104
  18. CARDIOASPIRIN [Concomitant]
     Active Substance: ASPIRIN
     Route: 065
     Dates: start: 2005
  19. TRAFLOXAL [Concomitant]
     Route: 047

REACTIONS (3)
  - Carotid artery stenosis [Recovered/Resolved with Sequelae]
  - Chest discomfort [Recovered/Resolved with Sequelae]
  - Supraventricular tachycardia [Recovered/Resolved with Sequelae]

NARRATIVE: CASE EVENT DATE: 20151104
